FAERS Safety Report 13090961 (Version 2)
Quarter: 2018Q3

REPORT INFORMATION
  Report Type: Report from Study
  Country: JP (occurrence: JP)
  Receive Date: 20170106
  Receipt Date: 20180704
  Transmission Date: 20181010
  Serious: Yes (Other)
  Sender: FDA-Public Use
  Company Number: JP-UCBSA-2016011044

PATIENT
  Age: 54 Year
  Sex: Female

DRUGS (11)
  1. ACETATED RINGER [Concomitant]
     Indication: FOCAL DYSCOGNITIVE SEIZURES
     Dosage: 500 ML, ONCE DAILY (QD)
     Route: 042
     Dates: start: 20160316, end: 20160316
  2. AMLODIPINE BESILATE [Concomitant]
     Active Substance: AMLODIPINE BESYLATE
     Indication: PRODUCT USED FOR UNKNOWN INDICATION
     Dosage: 5 MG DAILY DOSE
     Route: 048
  3. LEVETIRACETAM. [Suspect]
     Active Substance: LEVETIRACETAM
     Indication: EPILEPSY
     Dosage: 500 MG, ONCE DAILY (QD), CONCENTRATE FOR SOLUTION FOR INFUSION
     Route: 041
     Dates: start: 20160315, end: 20160316
  4. SOLDEM 1 [Concomitant]
     Active Substance: DEXTROSE\SODIUM CHLORIDE\SODIUM LACTATE
     Indication: FOCAL DYSCOGNITIVE SEIZURES
     Dosage: 200 MG, ONCE DAILY (QD)
     Route: 042
     Dates: start: 20160315, end: 20160315
  5. GLUCOSE [Concomitant]
     Active Substance: DEXTROSE
     Indication: FOCAL DYSCOGNITIVE SEIZURES
     Dosage: 500 ML, ONCE DAILY (QD)
     Route: 042
     Dates: start: 20160316, end: 20160316
  6. LEVETIRACETAM. [Suspect]
     Active Substance: LEVETIRACETAM
     Indication: OFF LABEL USE
  7. E KEPPRA [Suspect]
     Active Substance: LEVETIRACETAM
     Indication: EPILEPSY
     Dosage: 250 MG, 2X/DAY (BID)
     Route: 048
     Dates: start: 20160316, end: 20160317
  8. ATORVASTATIN [Concomitant]
     Active Substance: ATORVASTATIN
     Indication: PRODUCT USED FOR UNKNOWN INDICATION
     Dosage: 10 MG DAILY DOSE
     Route: 048
  9. PRIMPERAN [Concomitant]
     Active Substance: METOCLOPRAMIDE HYDROCHLORIDE
     Indication: PRODUCT USED FOR UNKNOWN INDICATION
     Dosage: 10 MG DAILY DOSE
     Route: 042
     Dates: start: 20160315, end: 20160315
  10. ACETATED RINGER [Concomitant]
     Indication: FOCAL DYSCOGNITIVE SEIZURES
     Dosage: 500 ML, ONCE DAILY (QD)
     Route: 042
     Dates: start: 20160315, end: 20160315
  11. SOLDEM 3A [Concomitant]
     Active Substance: CARBOHYDRATES\POTASSIUM CHLORIDE\SODIUM CHLORIDE\SODIUM LACTATE
     Indication: FOCAL DYSCOGNITIVE SEIZURES
     Dosage: 500 MG, ONCE DAILY (QD)
     Route: 042
     Dates: start: 20160316, end: 20160317

REACTIONS (4)
  - Off label use [Unknown]
  - Vision blurred [Recovered/Resolved]
  - Pupillary reflex impaired [Recovered/Resolved]
  - Visual perseveration [Recovered/Resolved]

NARRATIVE: CASE EVENT DATE: 20160315
